FAERS Safety Report 7228177-3 (Version None)
Quarter: 2011Q1

REPORT INFORMATION
  Report Type: 
  Country: None (occurrence: None)
  Receive Date: 20110114
  Receipt Date: 20110106
  Transmission Date: 20110831
  Serious: Yes (Death)
  Sender: FDA-Public Use
  Company Number: US-PFIZER INC-2011000350

PATIENT
  Age: 26 Year
  Sex: Male

DRUGS (6)
  1. ALPRAZOLAM [Suspect]
     Route: 048
  2. COCAINE [Suspect]
     Route: 048
  3. NAPROXEN [Suspect]
     Route: 048
  4. SERTRALINE HYDROCHLORIDE [Suspect]
     Route: 048
  5. OXYCODONE [Suspect]
     Route: 048
  6. METHADONE [Suspect]
     Route: 048

REACTIONS (1)
  - COMPLETED SUICIDE [None]
